FAERS Safety Report 10953236 (Version 2)
Quarter: 2015Q2

REPORT INFORMATION
  Report Type: Spontaneous
  Country: US (occurrence: US)
  Receive Date: 20150325
  Receipt Date: 20150409
  Transmission Date: 20150821
  Serious: Yes (Congenital Anomaly)
  Sender: FDA-Public Use
  Company Number: US-ELI_LILLY_AND_COMPANY-US201503006368

PATIENT

DRUGS (3)
  1. ADVIL [Concomitant]
     Active Substance: IBUPROFEN
     Indication: HEADACHE
     Dosage: UNK, UNKNOWN
     Route: 064
  2. EXCEDRIN MIGRAINE [Concomitant]
     Active Substance: ACETAMINOPHEN\ASPIRIN\CAFFEINE
     Indication: HEADACHE
     Dosage: UNK, UNKNOWN
     Route: 064
  3. PROZAC [Suspect]
     Active Substance: FLUOXETINE HYDROCHLORIDE
     Indication: PRODUCT USED FOR UNKNOWN INDICATION
     Dosage: 20 MG, QD
     Route: 064

REACTIONS (6)
  - Otitis media chronic [Unknown]
  - Foetal exposure during pregnancy [Recovered/Resolved]
  - Cleft palate [Unknown]
  - Deafness bilateral [Unknown]
  - Cleft lip [Unknown]
  - Plagiocephaly [Unknown]
